FAERS Safety Report 5532477-2 (Version None)
Quarter: 2007Q4

REPORT INFORMATION
  Report Type: 
  Country: None (occurrence: None)
  Receive Date: 20071203
  Receipt Date: 20071127
  Transmission Date: 20080405
  Serious: Yes (Death, Hospitalization)
  Sender: FDA-Public Use
  Company Number: BY-PFIZER INC-2007094243

PATIENT
  Age: 75 Year
  Sex: Male

DRUGS (1)
  1. FRAGMIN [Suspect]
     Indication: THROMBOSIS PROPHYLAXIS
     Route: 058
     Dates: start: 20021006, end: 20021013

REACTIONS (2)
  - CEREBROVASCULAR ACCIDENT [None]
  - PULMONARY EMBOLISM [None]
